FAERS Safety Report 10211594 (Version 2)
Quarter: 2014Q2

REPORT INFORMATION
  Report Type: Spontaneous
  Country: US (occurrence: US)
  Receive Date: 20140602
  Receipt Date: 20140611
  Transmission Date: 20141212
  Serious: Yes (Death)
  Sender: FDA-Public Use
  Company Number: US-ACTELION-A-NJ2014-99481

PATIENT
  Age: 72 Year
  Sex: Male

DRUGS (1)
  1. TRACLEER [Suspect]
     Indication: PULMONARY ARTERIAL HYPERTENSION
     Dosage: 125 MG, UNK
     Route: 048
     Dates: end: 20140510

REACTIONS (8)
  - Pulmonary hypertension [Fatal]
  - Multi-organ failure [Fatal]
  - Emphysema [Fatal]
  - Coronary artery disease [Fatal]
  - Pulmonary fibrosis [Fatal]
  - Sleep apnoea syndrome [Fatal]
  - Diastolic dysfunction [Fatal]
  - Renal impairment [Fatal]
